FAERS Safety Report 5709033-6 (Version None)
Quarter: 2008Q2

REPORT INFORMATION
  Report Type: 
  Country: None (occurrence: None)
  Receive Date: 20080416
  Receipt Date: 20080416
  Transmission Date: 20081010
  Serious: Yes (Other)
  Sender: FDA-Public Use
  Company Number: None

PATIENT
  Sex: Male
  Weight: 84.8 kg

DRUGS (14)
  1. TAXOTERE [Suspect]
     Indication: PROSTATE CANCER
     Dosage: 156MGIVBP
     Route: 042
     Dates: start: 20080403
  2. BEVACIZUMAB 15MG/KG [Suspect]
     Indication: PROSTATE CANCER
     Dosage: 1320 MGIVBP
     Route: 042
     Dates: start: 20080403
  3. RAD001 5MG [Suspect]
     Indication: PROSTATE CANCER
     Dosage: 5MG PO
     Route: 048
     Dates: start: 20080403, end: 20080413
  4. ALLOPURINOL [Concomitant]
  5. AMBIEN CR [Concomitant]
  6. CALCIUM [Concomitant]
  7. COQ10 [Concomitant]
  8. CYMBALTA [Concomitant]
  9. FOLGARD [Concomitant]
  10. HYDROCHLOROTHIAZIDE [Concomitant]
  11. OSCAL [Concomitant]
  12. POTASSIUM CHLORIDE [Concomitant]
  13. PROTONIX [Concomitant]
  14. RES YEAST RICE [Concomitant]

REACTIONS (4)
  - FATIGUE [None]
  - FEELING ABNORMAL [None]
  - NEUTROPENIA [None]
  - PYREXIA [None]
